FAERS Safety Report 7883949-7 (Version None)
Quarter: 2011Q4

REPORT INFORMATION
  Report Type: 
  Country: None (occurrence: None)
  Receive Date: 20111102
  Receipt Date: 20111027
  Transmission Date: 20120403
  Serious: Yes (Other)
  Sender: FDA-Public Use
  Company Number: JP-JNJFOC-20111003186

PATIENT
  Age: 80 Year
  Sex: Female

DRUGS (8)
  1. PERINDOPRIL ERBUMINE [Concomitant]
     Route: 048
  2. OLMESARTAN MEDOXOMIL [Concomitant]
     Route: 048
  3. GALANTAMINE HYDROBROMIDE [Suspect]
     Indication: DEMENTIA ALZHEIMER'S TYPE
     Route: 048
     Dates: start: 20110902, end: 20110929
  4. GALANTAMINE HYDROBROMIDE [Suspect]
     Route: 048
     Dates: start: 20110930, end: 20111001
  5. PIRETANIDE [Concomitant]
     Route: 065
  6. ASPIRIN [Concomitant]
     Route: 048
  7. ANPLAG [Concomitant]
     Route: 048
  8. SCOPOLAMINE [Concomitant]
     Route: 065

REACTIONS (4)
  - TONIC CONVULSION [None]
  - ABDOMINAL PAIN [None]
  - VOMITING [None]
  - RESPIRATORY ARREST [None]
